FAERS Safety Report 9795829 (Version 2)
Quarter: 2014Q1

REPORT INFORMATION
  Report Type: Spontaneous
  Country: US (occurrence: US)
  Receive Date: 20140103
  Receipt Date: 20140103
  Transmission Date: 20141002
  Serious: Yes (Other)
  Sender: FDA-Public Use
  Company Number: US-ASTELLAS-2013US011756

PATIENT
  Sex: Female
  Weight: 103 kg

DRUGS (1)
  1. LEXISCAN [Suspect]
     Indication: SCAN MYOCARDIAL PERFUSION
     Dosage: 0.4 MG, TOTAL DOSE, OVER 10 SECONDS
     Route: 042
     Dates: start: 20131001, end: 20131001

REACTIONS (3)
  - Drug intolerance [Unknown]
  - Depressed level of consciousness [Unknown]
  - Hypotension [Recovered/Resolved]
